FAERS Safety Report 4330795-7 (Version None)
Quarter: 2004Q1

REPORT INFORMATION
  Report Type: 
  Country: None (occurrence: None)
  Receive Date: 20040331
  Receipt Date: 20040322
  Transmission Date: 20041129
  Serious: Yes (Death, Other)
  Sender: FDA-Public Use
  Company Number: USA030741953

PATIENT
  Age: 17 Year
  Sex: Male

DRUGS (5)
  1. ZYPREXA [Suspect]
     Dates: start: 20020801, end: 20021101
  2. ADDERALL 10 [Concomitant]
  3. TRAZODONE HCL [Concomitant]
  4. MARIJUANA [Concomitant]
  5. WELLBUTRIN [Concomitant]

REACTIONS (2)
  - CONVULSION [None]
  - HEART RATE INCREASED [None]
